FAERS Safety Report 6291559-0 (Version None)
Quarter: 2009Q3

REPORT INFORMATION
  Report Type: 
  Country: None (occurrence: None)
  Receive Date: 20090730
  Receipt Date: 20090720
  Transmission Date: 20100115
  Serious: Yes (Hospitalization)
  Sender: FDA-Public Use
  Company Number: PHHY2009MX29985

PATIENT

DRUGS (2)
  1. TRILEPTAL [Suspect]
     Indication: EPILEPSY
     Dosage: 1.5 TABLETS (300 MG) DAILY
     Route: 048
     Dates: start: 20061101, end: 20090624
  2. TRILEPTAL [Suspect]
     Dosage: 0.5 TABLET (300 MG) PER DAY
     Route: 048
     Dates: start: 20090721

REACTIONS (3)
  - CHOLECYSTECTOMY [None]
  - GALLBLADDER DISORDER [None]
  - HERNIA HIATUS REPAIR [None]
